FAERS Safety Report 9349277 (Version 1)
Quarter: 2013Q2

REPORT INFORMATION
  Report Type: Report from Study
  Country: US (occurrence: US)
  Receive Date: 20130614
  Receipt Date: 20130614
  Transmission Date: 20140414
  Serious: Yes (Hospitalization, Other)
  Sender: FDA-Public Use
  Company Number: US-ABBOTT-13P-163-1101614-00

PATIENT
  Age: 58 Year
  Sex: Female

DRUGS (10)
  1. HUMIRA [Suspect]
     Indication: RHEUMATOID ARTHRITIS
     Dates: start: 201208
  2. LISINOPRIL [Concomitant]
     Indication: HYPERTENSION
     Route: 048
  3. BUPROPION [Concomitant]
     Indication: DEPRESSION
     Route: 048
  4. LYRICA [Concomitant]
     Indication: FIBROMYALGIA
     Route: 048
  5. FOSAMAX [Concomitant]
     Indication: OSTEOARTHRITIS
     Route: 048
  6. FOSAMAX [Concomitant]
     Indication: BONE DISORDER
  7. FOSAMAX [Concomitant]
     Indication: PROPHYLAXIS
  8. NASACORT [Concomitant]
     Indication: HYPERSENSITIVITY
     Dosage: IN NARE DAILY
  9. HYDROCORTISONE [Concomitant]
     Indication: PRODUCT USED FOR UNKNOWN INDICATION
     Dosage: FLUCTUATING DOSE DEPENDING ON BEHCET^S SYNDROME SYMPTOMS
  10. HYDROCORTISONE [Concomitant]
     Dosage: 120 MG DAILY
     Route: 048

REACTIONS (10)
  - Hernia [Recovered/Resolved]
  - Bladder prolapse [Recovered/Resolved]
  - Behcet^s syndrome [Recovered/Resolved]
  - Pain [Recovered/Resolved]
  - Inflammation [Recovered/Resolved]
  - Stomatitis [Recovered/Resolved]
  - Headache [Recovered/Resolved]
  - Pyrexia [Recovered/Resolved]
  - Lymphadenopathy [Recovered/Resolved]
  - Injection site pain [Recovered/Resolved]
